FAERS Safety Report 24232004 (Version 1)
Quarter: 2024Q3

REPORT INFORMATION
  Report Type: Spontaneous
  Country: TN (occurrence: TN)
  Receive Date: 20240821
  Receipt Date: 20240821
  Transmission Date: 20241016
  Serious: Yes (Life-Threatening, Hospitalization)
  Sender: MACLEODS
  Company Number: TN-MACLEODS PHARMA-MAC2024048871

PATIENT

DRUGS (1)
  1. LIDOCAINE [Suspect]
     Active Substance: LIDOCAINE
     Indication: Circumcision
     Dosage: 1.5 ML OF 1% LIDOCAINE (15 MG)
     Route: 058

REACTIONS (6)
  - Seizure [Recovered/Resolved]
  - Apnoea [Recovered/Resolved]
  - Cyanosis [Recovered/Resolved]
  - Hypertonia [Recovered/Resolved]
  - Unresponsive to stimuli [Recovered/Resolved]
  - Toxicity to various agents [Unknown]
